FAERS Safety Report 5048581-1 (Version None)
Quarter: 2006Q2

REPORT INFORMATION
  Report Type: 
  Country: None (occurrence: None)
  Receive Date: 20060601
  Receipt Date: 20060308
  Transmission Date: 20061013
  Serious: No
  Sender: FDA-Public Use
  Company Number: US200603002117

PATIENT
  Age: 70 Year
  Sex: Male
  Weight: 93 kg

DRUGS (3)
  1. CYMBALTA [Suspect]
     Indication: HERPES ZOSTER
     Dosage: 180 MG, DAILY (1/D)
     Dates: start: 20051001
  2. TOPAMAX /AUS/ (TOPIRAMATE) [Concomitant]
  3. HYDROCODONE BITARTRATE + ACETAMINOPHEN [Concomitant]

REACTIONS (3)
  - FEELING ABNORMAL [None]
  - HYPERSOMNIA [None]
  - PRESCRIBED OVERDOSE [None]
